FAERS Safety Report 14412532 (Version 4)
Quarter: 2018Q2

REPORT INFORMATION
  Report Type: Report from Study
  Country: ES (occurrence: ES)
  Receive Date: 20180119
  Receipt Date: 20180419
  Transmission Date: 20180711
  Serious: Yes (Hospitalization)
  Sender: FDA-Public Use
  Company Number: ES-ROCHE-2054789

PATIENT
  Age: 73 Year
  Sex: Female
  Weight: 63.9 kg

DRUGS (12)
  1. LANTUS [Concomitant]
     Active Substance: INSULIN GLARGINE
     Route: 065
     Dates: start: 20171110
  2. EFFERALGAN (SPAIN) [Concomitant]
     Route: 065
     Dates: start: 20171122, end: 20180116
  3. DEPRAX (SPAIN) [Concomitant]
     Active Substance: TRAZODONE HYDROCHLORIDE
     Route: 065
     Dates: start: 20180109
  4. RO 6874281 (FAP IL2V MAB) [Suspect]
     Active Substance: RO-6874281
     Indication: RENAL CELL CARCINOMA
     Dosage: LAST DOSE PRIOR TO RENAL FAILURE ONSET DATE 09/JAN/2018?LAST DOSE PRIOR TO PNEUMONITIS ONSET DATE 16
     Route: 042
     Dates: start: 20180109
  5. LEVOFLOXACINO [Concomitant]
     Active Substance: LEVOFLOXACIN
     Route: 065
     Dates: start: 20180116, end: 20180123
  6. PANTOPRAZOL [Concomitant]
     Active Substance: PANTOPRAZOLE SODIUM
     Route: 065
     Dates: start: 20180109
  7. HIBOR [Concomitant]
     Active Substance: BEMIPARIN SODIUM
     Route: 065
     Dates: start: 20180116, end: 20180123
  8. ATEZOLIZUMAB. [Suspect]
     Active Substance: ATEZOLIZUMAB
     Indication: RENAL CELL CARCINOMA
     Dosage: LAST DOSE PRIOR TO RENAL FAILURE ONSET DATE 09/JAN/2018?AST DOSE PRIOR TO PNEUMONITIS ONSET DATE 09/
     Route: 042
     Dates: start: 20180109
  9. LEVOFLOXACINO [Concomitant]
     Active Substance: LEVOFLOXACIN
     Route: 065
     Dates: start: 20180121, end: 20180122
  10. ALPRAZOLAM. [Concomitant]
     Active Substance: ALPRAZOLAM
     Route: 065
     Dates: start: 20180109
  11. EFFERALGAN (SPAIN) [Concomitant]
     Route: 065
     Dates: start: 20180110
  12. LEVOFLOXACINO [Concomitant]
     Active Substance: LEVOFLOXACIN
     Route: 065
     Dates: start: 20180116, end: 20180130

REACTIONS (2)
  - Pneumonitis [Recovered/Resolved]
  - Renal failure [Recovered/Resolved]

NARRATIVE: CASE EVENT DATE: 20180110
